FAERS Safety Report 5530733-5 (Version None)
Quarter: 2007Q4

REPORT INFORMATION
  Report Type: 
  Country: None (occurrence: None)
  Receive Date: 20071130
  Receipt Date: 20070813
  Transmission Date: 20080405
  Serious: No
  Sender: FDA-Public Use
  Company Number: US-BRISTOL-MYERS SQUIBB COMPANY-13876651

PATIENT
  Age: 31 Year
  Sex: Female
  Weight: 49 kg

DRUGS (2)
  1. KENALOG [Suspect]
     Indication: BACK PAIN
     Dates: start: 20070711, end: 20070711
  2. KENALOG [Suspect]
     Indication: SCIATICA
     Dates: start: 20070711, end: 20070711

REACTIONS (4)
  - BACK PAIN [None]
  - MENORRHAGIA [None]
  - MUSCLE SPASMS [None]
  - PAIN IN EXTREMITY [None]
